FAERS Safety Report 5274402-8 (Version None)
Quarter: 2007Q1

REPORT INFORMATION
  Report Type: 
  Country: None (occurrence: None)
  Receive Date: 20070323
  Receipt Date: 20070315
  Transmission Date: 20070707
  Serious: Yes (Other)
  Sender: FDA-Public Use
  Company Number: PFIZER INC-2007005764

PATIENT
  Sex: Female
  Weight: 49 kg

DRUGS (8)
  1. CHANTIX [Suspect]
     Indication: SMOKING CESSATION THERAPY
     Dates: start: 20061226, end: 20070104
  2. CHANTIX [Suspect]
     Indication: TOBACCO USER
  3. ACTONEL [Concomitant]
  4. CARDIZEM CD [Concomitant]
  5. SPIRIVA [Concomitant]
  6. FORADIL [Concomitant]
  7. ALL OTHER THERAPEUTIC PRODUCTS [Concomitant]
  8. FLOVENT [Concomitant]

REACTIONS (4)
  - NAUSEA [None]
  - RETCHING [None]
  - VOMITING [None]
  - WEIGHT DECREASED [None]
